FAERS Safety Report 5800240-0 (Version None)
Quarter: 2008Q3

REPORT INFORMATION
  Report Type: 
  Country: None (occurrence: None)
  Receive Date: 20080701
  Receipt Date: 20080616
  Transmission Date: 20090109
  Serious: No
  Sender: FDA-Public Use
  Company Number: 2008AL007218

PATIENT
  Age: 60 Year
  Sex: Male
  Weight: 93.441 kg

DRUGS (4)
  1. DIGOXIN [Suspect]
     Indication: HEART VALVE REPLACEMENT
     Dosage: 0.25 MG DAILY PO
     Dates: start: 20000101, end: 20080401
  2. COUMADIN [Concomitant]
  3. PROZAC [Concomitant]
  4. LISINOPRIL [Concomitant]

REACTIONS (6)
  - CONCUSSION [None]
  - DIZZINESS [None]
  - FACIAL BONES FRACTURE [None]
  - FALL [None]
  - JOINT DISLOCATION [None]
  - VERTIGO [None]
